FAERS Safety Report 23868630 (Version 1)
Quarter: 2024Q2

REPORT INFORMATION
  Report Type: Spontaneous
  Country: US (occurrence: US)
  Receive Date: 20240517
  Receipt Date: 20240517
  Transmission Date: 20240716
  Serious: No
  Sender: FDA-Public Use
  Company Number: US-TEVA-VS-3195039

PATIENT

DRUGS (1)
  1. LENALIDOMIDE [Suspect]
     Active Substance: LENALIDOMIDE
     Indication: Plasma cell myeloma
     Dosage: LENALIDOMIDE 10MG TEVA
     Route: 065

REACTIONS (6)
  - Palpitations [Unknown]
  - Rash [Unknown]
  - Diarrhoea [Unknown]
  - Product formulation issue [Unknown]
  - Vision blurred [Unknown]
  - Hot flush [Unknown]
